FAERS Safety Report 18116309 (Version 1)
Quarter: 2020Q3

REPORT INFORMATION
  Report Type: Spontaneous
  Country: US (occurrence: US)
  Receive Date: 20200805
  Receipt Date: 20200805
  Transmission Date: 20201103
  Serious: No
  Sender: FDA-Public Use
  Company Number: US-TAKEDA-2020TUS033392

PATIENT
  Age: 69 Year
  Sex: Male
  Weight: 61.22 kg

DRUGS (3)
  1. NINLARO [Suspect]
     Active Substance: IXAZOMIB CITRATE
     Indication: OFF LABEL USE
  2. NINLARO [Suspect]
     Active Substance: IXAZOMIB CITRATE
     Indication: HYPERKALAEMIA
     Dosage: 3 MILLIGRAM
     Route: 048
     Dates: start: 20200803
  3. NINLARO [Suspect]
     Active Substance: IXAZOMIB CITRATE
     Indication: HEPATITIS B

REACTIONS (2)
  - Off label use [Unknown]
  - No adverse event [Unknown]

NARRATIVE: CASE EVENT DATE: 20200803
